FAERS Safety Report 8862214 (Version 2)
Quarter: 2012Q4

REPORT INFORMATION
  Report Type: 
  Country: RU (occurrence: RU)
  Receive Date: 20121026
  Receipt Date: 20121030
  Transmission Date: 20130627
  Serious: Yes (Death)
  Sender: FDA-Public Use
  Company Number: RU-ROCHE-1149559

PATIENT
  Age: 58 Year
  Sex: Male

DRUGS (4)
  1. HERCEPTIN [Suspect]
     Indication: GASTRIC CANCER
     Route: 065
     Dates: start: 20120510, end: 20120928
  2. 5-FLUOROURACIL [Concomitant]
     Indication: GASTRIC CANCER
     Route: 065
     Dates: start: 20120510, end: 20120913
  3. CISPLATINE [Concomitant]
     Indication: GASTRIC CANCER
     Route: 065
     Dates: start: 20120510, end: 20120913
  4. DOCETAXEL [Concomitant]
     Indication: GASTRIC CANCER
     Route: 065
     Dates: start: 20120510, end: 20120913

REACTIONS (1)
  - Disease progression [Fatal]
